FAERS Safety Report 5763439-8 (Version None)
Quarter: 2008Q2

REPORT INFORMATION
  Report Type: 
  Country: None (occurrence: None)
  Receive Date: 20080528
  Receipt Date: 20080417
  Transmission Date: 20081010
  Serious: No
  Sender: FDA-Public Use
  Company Number: PHEH2008US03961

PATIENT

DRUGS (1)
  1. TASIGNA [Suspect]

REACTIONS (1)
  - HEPATIC ENZYME INCREASED [None]
